FAERS Safety Report 6461708-X (Version None)
Quarter: 2009Q4

REPORT INFORMATION
  Report Type: 
  Country: None (occurrence: None)
  Receive Date: 20091123
  Receipt Date: 20091026
  Transmission Date: 20100525
  Serious: Yes (Death, Hospitalization)
  Sender: FDA-Public Use
  Company Number: 2009AC000129

PATIENT
  Age: 79 Year
  Sex: Female

DRUGS (30)
  1. DIGOXIN [Suspect]
     Indication: HEART RATE INCREASED
     Dosage: 0.25 MG; UNKOWN; PO
     Route: 048
  2. PREMARIN [Concomitant]
  3. ATENOLOL [Concomitant]
  4. ALTACE [Concomitant]
  5. ASPIRIN [Concomitant]
  6. MONOKET [Concomitant]
  7. LESCOL [Concomitant]
  8. SERTRALINE HCL [Concomitant]
  9. PANTOPRAZOLE [Concomitant]
  10. FUROSEMIDE [Concomitant]
  11. WARFARIN SODIUM [Concomitant]
  12. CARVEDILOL [Concomitant]
  13. LASIX [Concomitant]
  14. LOTREL [Concomitant]
  15. COREG [Concomitant]
  16. CEPHALEXIN [Concomitant]
  17. AMOXICILLIN [Concomitant]
  18. CEFACLOR [Concomitant]
  19. MUPIROCIN [Concomitant]
  20. LORAZEPAM [Concomitant]
  21. SERTRALINE HCL [Concomitant]
  22. LYRICA [Concomitant]
  23. ASTELIN [Concomitant]
  24. NITROGLYCERIN [Concomitant]
  25. ALPRAZOLAM [Concomitant]
  26. AVANDIA [Concomitant]
  27. MELOXICAM [Concomitant]
  28. FUROSEMIDE [Concomitant]
  29. PROTONIX [Concomitant]
  30. DILTIAZEM [Concomitant]

REACTIONS (11)
  - ASTHENIA [None]
  - BRADYCARDIA [None]
  - DIARRHOEA [None]
  - DIVERTICULITIS [None]
  - DIZZINESS [None]
  - FATIGUE [None]
  - HYPOTENSION [None]
  - INJURY [None]
  - LEFT VENTRICULAR DYSFUNCTION [None]
  - MUSCLE SPASMS [None]
  - VOMITING [None]
